FAERS Safety Report 10062526 (Version 6)
Quarter: 2014Q4

REPORT INFORMATION
  Report Type: Spontaneous
  Country: US (occurrence: US)
  Receive Date: 20140407
  Receipt Date: 20141003
  Transmission Date: 20150528
  Serious: Yes (Death, Hospitalization)
  Sender: FDA-Public Use
  Company Number: US-ACTELION-A-US2014-96814

PATIENT
  Age: 65 Year
  Sex: Female

DRUGS (3)
  1. VELETRI [Suspect]
     Active Substance: EPOPROSTENOL
     Indication: COR PULMONALE CHRONIC
     Dosage: 36.5 NG/KG, PER MIN
     Route: 042
     Dates: start: 20120306
  2. WARFARIN [Concomitant]
     Active Substance: WARFARIN
  3. RIOCIGUAT [Concomitant]
     Active Substance: RIOCIGUAT

REACTIONS (10)
  - Chronic kidney disease [Unknown]
  - Asthma [Unknown]
  - Vomiting [Not Recovered/Not Resolved]
  - Nausea [Not Recovered/Not Resolved]
  - Cardiac arrest [Unknown]
  - Asthenia [Unknown]
  - Gallbladder operation [Unknown]
  - Death [Fatal]
  - Dehydration [Unknown]
  - Blood potassium decreased [Unknown]

NARRATIVE: CASE EVENT DATE: 20140317
